FAERS Safety Report 8337193-X (Version None)
Quarter: 2012Q2

REPORT INFORMATION
  Report Type: 
  Country: None (occurrence: None)
  Receive Date: 20120504
  Receipt Date: 20120430
  Transmission Date: 20120825
  Serious: Yes (Hospitalization)
  Sender: FDA-Public Use
  Company Number: PHHO2002BR05107

PATIENT
  Sex: Male
  Weight: 67 kg

DRUGS (7)
  1. GILENYA [Suspect]
     Indication: RENAL TRANSPLANT
     Dosage: 2.5 MG, QD
     Route: 048
     Dates: start: 20010810, end: 20020819
  2. PREDNISONE TAB [Concomitant]
     Indication: RENAL TRANSPLANT
     Dosage: 10 MG, QD
     Route: 048
     Dates: start: 20011218
  3. BACTRIM [Concomitant]
     Dosage: 1 TABLET/ONCE
     Route: 048
     Dates: start: 20010812
  4. PROPRANOLOL [Concomitant]
     Dosage: UNK, UNK
     Dates: start: 20020208
  5. ZORTRESS [Suspect]
     Indication: RENAL TRANSPLANT
     Dosage: 4 MG, BID
     Route: 048
     Dates: start: 20010810, end: 20020703
  6. ZORTRESS [Suspect]
     Dosage: 2 MG, BID
     Route: 048
     Dates: start: 20020704, end: 20020819
  7. NIFEDIPINE [Concomitant]

REACTIONS (25)
  - PNEUMONIA [None]
  - METABOLIC ACIDOSIS [None]
  - PALLOR [None]
  - LUNG INFILTRATION [None]
  - ANAEMIA [None]
  - NEPHROPATHY [None]
  - RENAL IMPAIRMENT [None]
  - CARDIOMEGALY [None]
  - DYSPNOEA [None]
  - BLOOD CREATININE INCREASED [None]
  - LUNG INFECTION [None]
  - COMPLICATIONS OF TRANSPLANTED KIDNEY [None]
  - COUGH [None]
  - HAEMOSIDEROSIS [None]
  - GRAFT LOSS [None]
  - CYTOMEGALOVIRUS INFECTION [None]
  - THROMBOCYTOPENIA [None]
  - BRONCHITIS [None]
  - GLOMERULONEPHRITIS [None]
  - DRUG INEFFECTIVE [None]
  - INTERSTITIAL LUNG DISEASE [None]
  - KIDNEY TRANSPLANT REJECTION [None]
  - PANCYTOPENIA [None]
  - PYREXIA [None]
  - PROTEINURIA [None]
